FAERS Safety Report 8812601 (Version 1)
Quarter: 2012Q4

REPORT INFORMATION
  Report Type: 
  Country: JP (occurrence: JP)
  Receive Date: 20120927
  Receipt Date: 20120927
  Transmission Date: 20130627
  Serious: Yes (Other)
  Sender: FDA-Public Use
  Company Number: JP-B.I. PHARMACEUTICALS,INC./RIDGEFIELD-2012-BP-23095NB

PATIENT
  Age: 91 Year
  Sex: Female

DRUGS (2)
  1. PRAZAXA [Suspect]
     Dosage: 220 mg
     Route: 051
     Dates: start: 20120827, end: 20120905
  2. PRAZAXA [Suspect]
     Dosage: 300 mg
     Route: 051
     Dates: start: 20120906

REACTIONS (3)
  - Cerebral infarction [Unknown]
  - Drug effect incomplete [Unknown]
  - Wrong technique in drug usage process [Unknown]
